FAERS Safety Report 6200741-X (Version None)
Quarter: 2009Q2

REPORT INFORMATION
  Report Type: 
  Country: None (occurrence: None)
  Receive Date: 20090522
  Receipt Date: 20090513
  Transmission Date: 20091009
  Serious: Yes (Other)
  Sender: FDA-Public Use
  Company Number: GB-JNJCH-2009011893

PATIENT
  Sex: Female

DRUGS (3)
  1. REGAINE 2% [Suspect]
     Indication: ALOPECIA
     Dosage: TEXT:1 ML TWICE A DAY
     Route: 061
     Dates: start: 20090409, end: 20090420
  2. SERTRALINE HCL [Concomitant]
     Indication: ANXIETY
     Dosage: TEXT:UNSPECIFIED
     Route: 065
  3. NORINYL 1+35 28-DAY [Concomitant]
     Indication: CONTRACEPTION
     Dosage: TEXT:UNSPECIFIED
     Route: 065

REACTIONS (6)
  - ARTHRALGIA [None]
  - IMPAIRED WORK ABILITY [None]
  - JOINT SWELLING [None]
  - MYALGIA [None]
  - OEDEMA PERIPHERAL [None]
  - PARAESTHESIA [None]
